FAERS Safety Report 13185543 (Version 1)
Quarter: 2017Q1

REPORT INFORMATION
  Report Type: Spontaneous
  Country: JP (occurrence: JP)
  Receive Date: 20170203
  Receipt Date: 20170203
  Transmission Date: 20170428
  Serious: Yes (Hospitalization, Other)
  Sender: FDA-Public Use
  Company Number: JP-PFIZER INC-2017041507

PATIENT
  Age: 8 Decade
  Sex: Male

DRUGS (1)
  1. RHEUMATREX [Suspect]
     Active Substance: METHOTREXATE SODIUM
     Dosage: 14 MG, WEEKLY
     Route: 048

REACTIONS (3)
  - Pneumocystis jirovecii pneumonia [Unknown]
  - Interstitial lung disease [Recovered/Resolved]
  - Blood beta-D-glucan increased [Unknown]
